FAERS Safety Report 4507589-2 (Version None)
Quarter: 2004Q4

REPORT INFORMATION
  Report Type: 
  Country: None (occurrence: None)
  Receive Date: 20041118
  Receipt Date: 20041105
  Transmission Date: 20050328
  Serious: Yes (Disabling)
  Sender: FDA-Public Use
  Company Number: HQWYE270808NOV04

PATIENT
  Age: 77 Year
  Sex: Male

DRUGS (10)
  1. CORDARONE [Suspect]
     Dosage: 400 MG 1X PER 1 DAY ORAL
     Route: 048
     Dates: start: 20020101, end: 20031201
  2. CORDARONE [Suspect]
     Dosage: 400 MG 1X PER 1 DAY ORAL
     Route: 048
     Dates: end: 20040101
  3. LASIX [Concomitant]
  4. ALDACTONE [Concomitant]
  5. UNAT (TORASEMIDE) [Concomitant]
  6. RAMIPRIL [Concomitant]
  7. SIMVASTATIN [Concomitant]
  8. ALLOPURINOL [Concomitant]
  9. LEVOTHYROXINE SODIUM [Concomitant]
  10. CARVEDILOL [Concomitant]

REACTIONS (3)
  - CORNEAL DEPOSITS [None]
  - FALL [None]
  - LOSS OF CONSCIOUSNESS [None]
